FAERS Safety Report 20115358 (Version 1)
Quarter: 2021Q4

REPORT INFORMATION
  Report Type: Spontaneous
  Country: US (occurrence: US)
  Receive Date: 20211125
  Receipt Date: 20211125
  Transmission Date: 20220303
  Serious: Yes (Other)
  Sender: FDA-Public Use
  Company Number: US-SUN PHARMACEUTICAL INDUSTRIES LTD-2021R1-317360

PATIENT
  Age: 61 Year
  Sex: Male

DRUGS (4)
  1. CARBAMAZEPINE [Interacting]
     Active Substance: CARBAMAZEPINE
     Indication: Seizure
     Dosage: UNK
     Route: 065
  2. IBUPROFEN [Suspect]
     Active Substance: IBUPROFEN
     Indication: Pericardial haemorrhage
     Dosage: 800 MILLIGRAM, TID
     Route: 065
  3. COLCHICINE [Interacting]
     Active Substance: COLCHICINE
     Indication: Pericarditis
     Dosage: 0.6 MILLIGRAM, DAILY
     Route: 065
  4. COLCHICINE [Interacting]
     Active Substance: COLCHICINE
     Dosage: 1.2 MG LOADING DOSE
     Route: 065

REACTIONS (4)
  - Treatment failure [Unknown]
  - Drug interaction [Unknown]
  - Renal impairment [Unknown]
  - Abdominal discomfort [Unknown]
